FAERS Safety Report 4710583-X (Version None)
Quarter: 2005Q3

REPORT INFORMATION
  Report Type: 
  Country: None (occurrence: None)
  Receive Date: 20050707
  Receipt Date: 20050428
  Transmission Date: 20060218
  Serious: Yes (Hospitalization)
  Sender: FDA-Public Use
  Company Number: PAR_0100_2005

PATIENT
  Age: 68 Year
  Sex: Female

DRUGS (5)
  1. ISOPTIN [Suspect]
     Dosage: 7200 MG ONCE PO
     Route: 048
     Dates: start: 20050329, end: 20050329
  2. ISOPTIN [Suspect]
     Indication: ARRHYTHMIA
     Dosage: 240 MG PO
     Route: 048
  3. ASPIRIN [Concomitant]
  4. BROMAZEPAM [Concomitant]
  5. IOSAETAN [Concomitant]

REACTIONS (8)
  - AORTIC VALVE INCOMPETENCE [None]
  - ATRIOVENTRICULAR BLOCK COMPLETE [None]
  - CARDIOGENIC SHOCK [None]
  - DRUG TOXICITY [None]
  - INTENTIONAL MISUSE [None]
  - OVERDOSE [None]
  - PERICARDITIS [None]
  - SUICIDE ATTEMPT [None]
